FAERS Safety Report 12188238 (Version 1)
Quarter: 2016Q1

REPORT INFORMATION
  Report Type: Spontaneous
  Country: US (occurrence: US)
  Receive Date: 20160317
  Receipt Date: 20160317
  Transmission Date: 20160526
  Serious: No
  Sender: FDA-Public Use
  Company Number: US-GLAXOSMITHKLINE-US2016037625

PATIENT
  Age: 79 Year
  Sex: Male

DRUGS (1)
  1. FLONASE [Suspect]
     Active Substance: FLUTICASONE PROPIONATE
     Indication: HYPERSENSITIVITY
     Dosage: UNK
     Dates: start: 20160314, end: 20160315

REACTIONS (2)
  - Vision blurred [Recovered/Resolved]
  - Reading disorder [Recovered/Resolved]

NARRATIVE: CASE EVENT DATE: 20160315
